FAERS Safety Report 22856918 (Version 3)
Quarter: 2023Q4

REPORT INFORMATION
  Report Type: Spontaneous
  Country: US (occurrence: US)
  Receive Date: 20230823
  Receipt Date: 20231024
  Transmission Date: 20240110
  Serious: Yes (Hospitalization)
  Sender: FDA-Public Use
  Company Number: US-Stemline Therapeutics, Inc.-2023ST001774

PATIENT
  Age: 89 Year
  Sex: Female

DRUGS (1)
  1. ORSERDU [Suspect]
     Active Substance: ELACESTRANT
     Indication: Product used for unknown indication
     Route: 048
     Dates: start: 20230623

REACTIONS (10)
  - Limb injury [Unknown]
  - Physical fitness training [Unknown]
  - Dyspnoea [Unknown]
  - Abdominal discomfort [Unknown]
  - Suspected counterfeit product [Unknown]
  - Product size issue [Unknown]
  - Product dose omission issue [Unknown]
  - Asthenia [Unknown]
  - Constipation [Recovered/Resolved]
  - Cough [Unknown]
